FAERS Safety Report 17517879 (Version 1)
Quarter: 2020Q1

REPORT INFORMATION
  Report Type: Report from Study
  Country: US (occurrence: US)
  Receive Date: 20200309
  Receipt Date: 20200309
  Transmission Date: 20200409
  Serious: Yes (Death, Hospitalization)
  Sender: FDA-Public Use
  Company Number: PHHY2018US048017

PATIENT
  Age: 70 Year
  Sex: Female
  Weight: 34.47 kg

DRUGS (3)
  1. DUONEB [Concomitant]
     Active Substance: ALBUTEROL SULFATE\IPRATROPIUM BROMIDE
     Indication: PRODUCT USED FOR UNKNOWN INDICATION
     Dosage: UNK UNK, BID
     Route: 065
     Dates: start: 201801
  2. LAMPRENE [Suspect]
     Active Substance: CLOFAZIMINE
     Indication: PNEUMONIA
  3. LAMPRENE [Suspect]
     Active Substance: CLOFAZIMINE
     Indication: MYCOBACTERIUM ABSCESSUS INFECTION
     Dosage: 50 MG, UNK
     Route: 048
     Dates: start: 20170814, end: 20180125

REACTIONS (10)
  - Leukocytosis [Fatal]
  - Pneumonia [Fatal]
  - Lung infiltration [Fatal]
  - Bradycardia [Fatal]
  - Weight gain poor [Unknown]
  - Dyspnoea [Fatal]
  - Malnutrition [Fatal]
  - Failure to thrive [Fatal]
  - Diarrhoea [Unknown]
  - Cardiac arrest [Fatal]

NARRATIVE: CASE EVENT DATE: 20180202
